FAERS Safety Report 17055347 (Version 3)
Quarter: 2020Q1

REPORT INFORMATION
  Report Type: Report from Study
  Country: US (occurrence: US)
  Receive Date: 20191120
  Receipt Date: 20200324
  Transmission Date: 20200409
  Serious: No
  Sender: FDA-Public Use
  Company Number: NVSC2019US041892

PATIENT
  Sex: Female

DRUGS (2)
  1. COSENTYX [Suspect]
     Active Substance: SECUKINUMAB
     Indication: PSORIATIC ARTHROPATHY
     Dosage: 300 MG (WEEKS 0, 1, 2, 3, AND 4. THEN ONCE EVERY 4 WEEKS THEREAFTER)
     Route: 058
     Dates: start: 20190905
  2. COSENTYX [Suspect]
     Active Substance: SECUKINUMAB
     Indication: RHEUMATOID ARTHRITIS
     Dosage: 300 MG, Q4W
     Route: 058

REACTIONS (5)
  - Rhinorrhoea [Unknown]
  - Feeling hot [Unknown]
  - Hypoaesthesia [Unknown]
  - Nasopharyngitis [Unknown]
  - Product use in unapproved indication [Unknown]
